FAERS Safety Report 6457677-9 (Version None)
Quarter: 2009Q4

REPORT INFORMATION
  Report Type: 
  Country: None (occurrence: None)
  Receive Date: 20091120
  Receipt Date: 20091110
  Transmission Date: 20100525
  Serious: Yes (Other)
  Sender: FDA-Public Use
  Company Number: 2009JP006291

PATIENT
  Age: 28 Year
  Sex: Male

DRUGS (5)
  1. PROGRAF [Suspect]
     Indication: RENAL TRANSPLANT
  2. MYCOPHENOLATE MOFETIL [Concomitant]
  3. BASILIXIMAB (BASILIXIMAB) FORMULATION UNKNOWN [Concomitant]
  4. VALGANCICLOVIR (VALGANCICLOVIR) FORMULATION UNKNOWN [Concomitant]
  5. ANGIOTENSIN II (ANGIOTENSIN II) FORMULATION UNKNOWN [Concomitant]

REACTIONS (2)
  - CYTOMEGALOVIRUS INFECTION [None]
  - GLOMERULONEPHRITIS [None]
